FAERS Safety Report 6877069-8 (Version None)
Quarter: 2010Q3

REPORT INFORMATION
  Report Type: 
  Country: None (occurrence: None)
  Receive Date: 20100727
  Receipt Date: 20100727
  Transmission Date: 20110219
  Serious: Yes (Life-Threatening, Other)
  Sender: FDA-Public Use
  Company Number: None

PATIENT
  Age: 57 Year
  Sex: Male
  Weight: 99.7913 kg

DRUGS (2)
  1. ADVIL [Suspect]
     Indication: STRESS FRACTURE
     Dosage: 200 MG 2-3 TIME DAILY PO
     Route: 048
     Dates: start: 20071028, end: 20100417
  2. ADVIL [Suspect]
     Indication: HEADACHE

REACTIONS (4)
  - BLOOD GLUCOSE DECREASED [None]
  - DISORIENTATION [None]
  - HYPERHIDROSIS [None]
  - ROAD TRAFFIC ACCIDENT [None]
